FAERS Safety Report 4321091-2 (Version None)
Quarter: 2004Q1

REPORT INFORMATION
  Report Type: 
  Country: None (occurrence: None)
  Receive Date: 20040315
  Receipt Date: 20031222
  Transmission Date: 20041129
  Serious: Yes (Hospitalization, Other)
  Sender: FDA-Public Use
  Company Number: PHEH2003US10110

PATIENT
  Age: 53 Year
  Sex: Female

DRUGS (17)
  1. TRILEPTAL [Suspect]
     Indication: COMPLEX PARTIAL SEIZURES
     Dosage: 150 MG, BID, ORAL
     Route: 048
     Dates: start: 20031001, end: 20031001
  2. CELEBREX [Concomitant]
  3. SYNTHROID [Concomitant]
  4. LIPITOR [Concomitant]
  5. CARDIZEM [Concomitant]
  6. GUAIFENESIN [Concomitant]
  7. OXYCONTIN [Concomitant]
  8. XANAX [Concomitant]
  9. SENOKOT [Concomitant]
  10. DILTIAZEM - SLOW RELEASE ^ADENYLCHEMIE^ (DILTIAZEM HYDROCHLORIDE) [Concomitant]
  11. DMAE [Concomitant]
  12. COLACE [Concomitant]
  13. TEMAZEPAM [Concomitant]
  14. CLONAZEPAM [Concomitant]
  15. EFFEXOR [Concomitant]
  16. PRILOSEC [Concomitant]
  17. ACCUPRIL [Concomitant]

REACTIONS (4)
  - ANGIONEUROTIC OEDEMA [None]
  - HYPONATRAEMIA [None]
  - OEDEMA PERIPHERAL [None]
  - PETECHIAE [None]
